FAERS Safety Report 4555826-0 (Version None)
Quarter: 2005Q1

REPORT INFORMATION
  Report Type: 
  Country: None (occurrence: None)
  Receive Date: 20050112
  Receipt Date: 20040623
  Transmission Date: 20050727
  Serious: Yes (Other)
  Sender: FDA-Public Use
  Company Number: 200418757BWH

PATIENT
  Age: 66 Year
  Sex: Female
  Weight: 92.9874 kg

DRUGS (11)
  1. CIPRO [Suspect]
     Indication: BRONCHOPNEUMONIA
     Dosage: 250 MG, BID, ORAL
     Route: 048
     Dates: start: 20040423
  2. XOPENEX [Suspect]
     Indication: BRONCHOPNEUMONIA
     Dosage: 1.25 MG, TID, RESPIRATORY (INHALATION)
     Route: 055
     Dates: start: 20040423
  3. LASIX [Concomitant]
  4. SLOW-K [Concomitant]
  5. INDERAL [Concomitant]
  6. ALLOPURINOL [Concomitant]
  7. BENADRYL [Concomitant]
  8. VALIUM [Concomitant]
  9. PLAVIX [Concomitant]
  10. BECONASE [Concomitant]
  11. NEURONTIN [Concomitant]

REACTIONS (2)
  - ANURIA [None]
  - DYSGEUSIA [None]
